FAERS Safety Report 21571493 (Version 1)
Quarter: 2022Q4

REPORT INFORMATION
  Report Type: Spontaneous
  Country: US (occurrence: US)
  Receive Date: 20221109
  Receipt Date: 20221109
  Transmission Date: 20230112
  Serious: No
  Sender: FDA-Public Use
  Company Number: US-ELI_LILLY_AND_COMPANY-US202210005131

PATIENT
  Sex: Male
  Weight: 117.91 kg

DRUGS (7)
  1. TRULICITY [Suspect]
     Active Substance: DULAGLUTIDE
     Indication: Product used for unknown indication
     Dosage: 4.5 MG, UNKNOWN
     Route: 065
  2. TRULICITY [Suspect]
     Active Substance: DULAGLUTIDE
     Indication: Product used for unknown indication
     Dosage: 4.5 MG, UNKNOWN
     Route: 065
  3. TRULICITY [Suspect]
     Active Substance: DULAGLUTIDE
     Dosage: 4.5 MG, UNKNOWN
     Route: 065
  4. TRULICITY [Suspect]
     Active Substance: DULAGLUTIDE
     Dosage: 4.5 MG, UNKNOWN
     Route: 065
  5. CORTISONE [Suspect]
     Active Substance: CORTISONE
     Indication: Arthritis
     Dosage: EVERY THREE MONTHS
     Route: 065
  6. EUFLEXXA [Concomitant]
     Active Substance: HYALURONATE SODIUM
     Indication: Arthritis
     Dosage: UNK, UNKNOWN
     Route: 065
  7. TYLENOL [Concomitant]
     Active Substance: ACETAMINOPHEN
     Indication: Arthralgia
     Dosage: UNK, UNKNOWN

REACTIONS (2)
  - Glycosylated haemoglobin increased [Unknown]
  - Arthritis [Unknown]
